FAERS Safety Report 22049676 (Version 1)
Quarter: 2023Q1

REPORT INFORMATION
  Report Type: Spontaneous
  Country: FR (occurrence: FR)
  Receive Date: 20230301
  Receipt Date: 20230301
  Transmission Date: 20230418
  Serious: Yes (Life-Threatening)
  Sender: FDA-Public Use
  Company Number: None

PATIENT
  Age: 75 Year
  Sex: Female

DRUGS (2)
  1. CARBOPLATIN [Suspect]
     Active Substance: CARBOPLATIN
     Indication: Ovarian cancer
     Dosage: DOSAGE NOT REPORTED , C1J1 ON 11/18/2022 , C2J1 ON 09/12/2022 , C3J1 ON 05/01/2023
     Dates: start: 20221118, end: 20230105
  2. PACLITAXEL [Suspect]
     Active Substance: PACLITAXEL
     Indication: Ovarian cancer
     Dosage: DOSAGE NOT REPORTED, C1J1 ON 11/18/2022, C2J1 ON 12/09/2022, C3J1 ON 01/05/2023
     Dates: start: 20221118, end: 20230105

REACTIONS (2)
  - Circulatory collapse [Recovered/Resolved]
  - Cardiac failure acute [Recovered/Resolved]

NARRATIVE: CASE EVENT DATE: 20221209
